FAERS Safety Report 14204913 (Version 1)
Quarter: 2017Q4

REPORT INFORMATION
  Report Type: Spontaneous
  Country: US (occurrence: US)
  Receive Date: 20171118
  Receipt Date: 20171118
  Transmission Date: 20180321
  Serious: No
  Sender: FDA-Public Use
  Company Number: None

PATIENT
  Sex: Female
  Weight: 80.55 kg

DRUGS (6)
  1. FORSKOLIN [Concomitant]
  2. VITAMIN B [Concomitant]
     Active Substance: VITAMIN B
  3. VITAMIN E [Concomitant]
     Active Substance: .ALPHA.-TOCOPHEROL
  4. LEVEMIR [Suspect]
     Active Substance: INSULIN DETEMIR
     Indication: DIABETES MELLITUS
     Dosage: ?          QUANTITY:45 INJECTION(S);?
     Route: 058
     Dates: start: 20171117, end: 20171118
  5. BIOTIN [Concomitant]
     Active Substance: BIOTIN
  6. APIDRA [Concomitant]
     Active Substance: INSULIN GLULISINE

REACTIONS (10)
  - Feeling abnormal [None]
  - Irritability [None]
  - Confusional state [None]
  - Emotional disorder [None]
  - Agitation [None]
  - Impaired work ability [None]
  - Fatigue [None]
  - Crying [None]
  - Hormone level abnormal [None]
  - Hot flush [None]

NARRATIVE: CASE EVENT DATE: 20171117
